FAERS Safety Report 7603338-X (Version None)
Quarter: 2011Q3

REPORT INFORMATION
  Report Type: 
  Country: None (occurrence: None)
  Receive Date: 20110712
  Receipt Date: 20110630
  Transmission Date: 20111222
  Serious: Yes (Hospitalization, Other)
  Sender: FDA-Public Use
  Company Number: PHHY2011US51340

PATIENT
  Sex: Female

DRUGS (1)
  1. AFINITOR [Suspect]
     Indication: MALIGNANT NEOPLASM OF ISLETS OF LANGERHANS
     Dosage: 10 MGD AILY
     Route: 048
     Dates: start: 20110308, end: 20110604

REACTIONS (15)
  - DRY SKIN [None]
  - PNEUMONIA [None]
  - DECREASED APPETITE [None]
  - PERSONALITY CHANGE [None]
  - CHILLS [None]
  - JOINT SWELLING [None]
  - ASTHENIA [None]
  - OEDEMA PERIPHERAL [None]
  - URINE OUTPUT DECREASED [None]
  - BLADDER DISORDER [None]
  - EPISTAXIS [None]
  - DEPRESSION [None]
  - LIP SWELLING [None]
  - DYSPNOEA [None]
  - RENAL DISORDER [None]
